FAERS Safety Report 7456338-7 (Version None)
Quarter: 2011Q2

REPORT INFORMATION
  Report Type: 
  Country: None (occurrence: None)
  Receive Date: 20110503
  Receipt Date: 20110426
  Transmission Date: 20111010
  Serious: Yes (Other)
  Sender: FDA-Public Use
  Company Number: US-ABBOTT-11P-163-0703126-00

PATIENT
  Sex: Male
  Weight: 70.37 kg

DRUGS (7)
  1. DEPAKOTE [Suspect]
     Indication: CONVULSION
     Route: 048
     Dates: start: 20101101
  2. DEPAKOTE ER [Suspect]
     Indication: CONVULSION
     Dates: start: 20081201, end: 20101001
  3. DIVALPROEX SODIUM [Suspect]
     Indication: CONVULSION
     Route: 048
     Dates: start: 20100301
  4. DEPAKOTE [Suspect]
     Indication: GRAND MAL CONVULSION
     Route: 048
  5. DIVALPROEX SODIUM [Suspect]
  6. PROZAC [Suspect]
     Indication: ABNORMAL BEHAVIOUR
     Dosage: VERY LOW DOSE
     Route: 048
     Dates: start: 20101028, end: 20101028
  7. DEPAKOTE ER [Suspect]
     Indication: GRAND MAL CONVULSION
     Dosage: DOSE DECREASED

REACTIONS (3)
  - CONVULSION [None]
  - TREATMENT NONCOMPLIANCE [None]
  - GRAND MAL CONVULSION [None]
